FAERS Safety Report 7153819-0 (Version None)
Quarter: 2010Q4

REPORT INFORMATION
  Report Type: 
  Country: None (occurrence: None)
  Receive Date: 20101213
  Receipt Date: 20100910
  Transmission Date: 20110411
  Serious: No
  Sender: FDA-Public Use
  Company Number: US-ABBOTT-10P-163-0656055-00

PATIENT
  Sex: Female
  Weight: 75.364 kg

DRUGS (3)
  1. MERIDIA [Suspect]
     Indication: WEIGHT DECREASED
     Dates: start: 20100701, end: 20100702
  2. MERIDIA [Suspect]
     Dates: start: 20100501, end: 20100701
  3. MERIDIA [Suspect]
     Dates: end: 20100910

REACTIONS (10)
  - ASTHENIA [None]
  - CHEST PAIN [None]
  - CONFUSIONAL STATE [None]
  - DYSPNOEA [None]
  - FATIGUE [None]
  - HEADACHE [None]
  - HEART RATE INCREASED [None]
  - HEART RATE IRREGULAR [None]
  - OCULAR HYPERAEMIA [None]
  - PALPITATIONS [None]
